FAERS Safety Report 8069350-4 (Version None)
Quarter: 2012Q1

REPORT INFORMATION
  Report Type: 
  Country: None (occurrence: None)
  Receive Date: 20120125
  Receipt Date: 20120120
  Transmission Date: 20120608
  Serious: Yes (Other)
  Sender: FDA-Public Use
  Company Number: US-JNJFOC-20120109657

PATIENT
  Age: 70 Year
  Sex: Male

DRUGS (32)
  1. DOXORUBICIN HCL [Suspect]
     Indication: BURKITT'S LYMPHOMA
     Route: 042
  2. CYCLOPHOSPHAMIDE [Suspect]
     Route: 065
  3. RITUXIMAB [Suspect]
     Route: 042
  4. ETOPOSIDE [Suspect]
     Indication: BURKITT'S LYMPHOMA
     Route: 065
  5. DOXORUBICIN HCL [Suspect]
     Route: 042
  6. DOXORUBICIN HCL [Suspect]
     Route: 042
  7. VINCRISTINE [Suspect]
     Indication: BURKITT'S LYMPHOMA
     Route: 065
  8. IFOSFAMIDE [Suspect]
     Indication: BURKITT'S LYMPHOMA
     Route: 065
  9. CYTARABINE [Suspect]
     Route: 065
  10. CYTARABINE [Suspect]
     Route: 065
  11. RITUXIMAB [Suspect]
     Route: 042
  12. IFOSFAMIDE [Suspect]
     Route: 065
  13. ETOPOSIDE [Suspect]
     Route: 065
  14. DOXORUBICIN HCL [Suspect]
     Route: 042
  15. RITUXIMAB [Suspect]
     Route: 042
  16. ETOPOSIDE [Suspect]
     Route: 065
  17. VINCRISTINE [Suspect]
     Route: 065
  18. METHOTREXATE [Suspect]
     Indication: BURKITT'S LYMPHOMA
     Route: 042
  19. METHOTREXATE [Suspect]
     Route: 042
  20. RITUXIMAB [Suspect]
     Indication: BURKITT'S LYMPHOMA
     Route: 042
  21. IFOSFAMIDE [Suspect]
     Route: 065
  22. IFOSFAMIDE [Suspect]
     Route: 065
  23. CYTARABINE [Suspect]
     Indication: BURKITT'S LYMPHOMA
     Route: 065
  24. CYCLOPHOSPHAMIDE [Suspect]
     Indication: BURKITT'S LYMPHOMA
     Route: 065
  25. CYCLOPHOSPHAMIDE [Suspect]
     Route: 065
  26. CYCLOPHOSPHAMIDE [Suspect]
     Route: 065
  27. ETOPOSIDE [Suspect]
     Route: 065
  28. CYTARABINE [Suspect]
     Route: 065
  29. VINCRISTINE [Suspect]
     Route: 065
  30. METHOTREXATE [Suspect]
     Route: 042
  31. VINCRISTINE [Suspect]
     Route: 065
  32. METHOTREXATE [Suspect]
     Route: 042

REACTIONS (1)
  - CARDIAC DISORDER [None]
